FAERS Safety Report 24840910 (Version 1)
Quarter: 2025Q1

REPORT INFORMATION
  Report Type: Spontaneous
  Country: DE (occurrence: DE)
  Receive Date: 20250114
  Receipt Date: 20250114
  Transmission Date: 20250408
  Serious: Yes (Other)
  Sender: MYLAN
  Company Number: DE-AMGEN-DEUSP2024255744

PATIENT
  Age: 57 Year
  Sex: Female

DRUGS (3)
  1. AZATHIOPRINE [Suspect]
     Active Substance: AZATHIOPRINE
     Indication: Serpiginous choroiditis
     Route: 065
  2. METHOTREXATE [Suspect]
     Active Substance: METHOTREXATE
     Indication: Serpiginous choroiditis
     Route: 065
  3. ADALIMUMAB [Suspect]
     Active Substance: ADALIMUMAB
     Indication: Serpiginous choroiditis
     Route: 065

REACTIONS (9)
  - Panic attack [Unknown]
  - Balance disorder [Unknown]
  - Abdominal discomfort [Unknown]
  - Infection susceptibility increased [Unknown]
  - Weight increased [Unknown]
  - Depression [Unknown]
  - Nausea [Unknown]
  - Alopecia [Unknown]
  - Off label use [Unknown]
